FAERS Safety Report 17457341 (Version 2)
Quarter: 2020Q2

REPORT INFORMATION
  Report Type: Report from Study
  Country: None (occurrence: US)
  Receive Date: 20200225
  Receipt Date: 20200414
  Transmission Date: 20200713
  Serious: Yes (Other)
  Sender: FDA-Public Use
  Company Number: US-ABBVIE-20K-163-3237388-00

PATIENT
  Age: 56 Year
  Sex: Male

DRUGS (3)
  1. HUMIRA [Suspect]
     Active Substance: ADALIMUMAB
     Dosage: DAY 8
     Route: 058
     Dates: start: 20200118, end: 20200118
  2. HUMIRA [Suspect]
     Active Substance: ADALIMUMAB
     Indication: PSORIASIS
     Dosage: DAY 1
     Route: 058
     Dates: start: 20200110, end: 20200110
  3. HUMIRA [Suspect]
     Active Substance: ADALIMUMAB
     Route: 058
     Dates: start: 2020, end: 20200214

REACTIONS (9)
  - Self-consciousness [Recovering/Resolving]
  - Impaired quality of life [Recovering/Resolving]
  - Psoriasis [Recovering/Resolving]
  - Skin irritation [Recovering/Resolving]
  - Brain neoplasm [Unknown]
  - General physical condition abnormal [Recovering/Resolving]
  - Emotional distress [Recovering/Resolving]
  - Frustration tolerance decreased [Recovering/Resolving]
  - Helplessness [Recovering/Resolving]

NARRATIVE: CASE EVENT DATE: 202001
